FAERS Safety Report 11898181 (Version 2)
Quarter: 2016Q1

REPORT INFORMATION
  Report Type: Spontaneous
  Country: JP (occurrence: JP)
  Receive Date: 20160108
  Receipt Date: 20160209
  Transmission Date: 20160526
  Serious: Yes (Other)
  Sender: FDA-Public Use
  Company Number: JP-MYLANLABS-2016M1000373

PATIENT

DRUGS (10)
  1. HYDROCORTISONE. [Suspect]
     Active Substance: HYDROCORTISONE
     Indication: COLITIS ULCERATIVE
     Dosage: 200 MG/DAY LATER REDUCED TO 100MG AND FURTHER TO 20MG AND LASTLY WITHDRAWN
     Route: 042
  2. COTRIMOXAZOLE [Suspect]
     Active Substance: SULFAMETHOXAZOLE\TRIMETHOPRIM
     Indication: ACUTE RESPIRATORY DISTRESS SYNDROME
     Dosage: TRIMETHPRIM: 1120 MG/DAY
     Route: 042
  3. PREDNISOLONE. [Suspect]
     Active Substance: PREDNISOLONE
     Dosage: 15 MG/DAY; LATER INCREASED TO 70MG/DAY
     Route: 065
  4. PIPERACILLIN AND TAZOBACTAM [Concomitant]
     Active Substance: PIPERACILLIN SODIUM\TAZOBACTAM SODIUM
     Indication: ACUTE RESPIRATORY DISTRESS SYNDROME
     Route: 042
  5. PREDNISOLONE. [Suspect]
     Active Substance: PREDNISOLONE
     Indication: COLITIS ULCERATIVE
     Dosage: 5 MG/DAY; LATER INCREASED TO 15MG/DAY
     Route: 048
  6. VANCOMYCIN [Concomitant]
     Active Substance: VANCOMYCIN
     Indication: ACUTE RESPIRATORY DISTRESS SYNDROME
     Route: 042
  7. PREDNISOLONE. [Suspect]
     Active Substance: PREDNISOLONE
     Dosage: 70 MG/DAY
     Route: 042
  8. PENTAMIDINE [Suspect]
     Active Substance: PENTAMIDINE
     Indication: PNEUMOCYSTIS JIROVECII PNEUMONIA
     Dosage: 210 MG/DAY
     Route: 065
  9. LEVOFLOXACIN. [Concomitant]
     Active Substance: LEVOFLOXACIN
     Indication: ACUTE RESPIRATORY DISTRESS SYNDROME
     Route: 042
  10. MICAFUNGIN [Concomitant]
     Active Substance: MICAFUNGIN
     Indication: ACUTE RESPIRATORY DISTRESS SYNDROME
     Route: 042

REACTIONS (4)
  - Nephropathy [Unknown]
  - Pneumocystis jirovecii pneumonia [Unknown]
  - Glucose tolerance decreased [Unknown]
  - Hepatic enzyme increased [Unknown]
